FAERS Safety Report 7930075-4 (Version None)
Quarter: 2011Q4

REPORT INFORMATION
  Report Type: 
  Country: None (occurrence: None)
  Receive Date: 20111108
  Receipt Date: 20110118
  Transmission Date: 20120403
  Serious: Yes (Hospitalization)
  Sender: FDA-Public Use
  Company Number: PHHY2010US83116

PATIENT
  Age: 64 Year
  Sex: Female

DRUGS (6)
  1. OXYTOCIN [Concomitant]
  2. ZOMETA [Suspect]
     Indication: METASTASES TO BONE
     Dosage: 4 MG, INTRAVENOUS
     Route: 042
     Dates: start: 20101123
  3. XELODA [Concomitant]
  4. PERCOCET [Concomitant]
  5. AMLODIPINE [Concomitant]
  6. FENTANYL [Concomitant]

REACTIONS (7)
  - MUSCULOSKELETAL PAIN [None]
  - NAUSEA [None]
  - BACK PAIN [None]
  - ARTHRALGIA [None]
  - HYPOTENSION [None]
  - MUSCULOSKELETAL CHEST PAIN [None]
  - VOMITING [None]
